FAERS Safety Report 5142364-X (Version None)
Quarter: 2006Q4

REPORT INFORMATION
  Report Type: 
  Country: None (occurrence: None)
  Receive Date: 20061102
  Receipt Date: 20060207
  Transmission Date: 20070319
  Serious: Yes (Life-Threatening, Hospitalization)
  Sender: FDA-Public Use
  Company Number: ES-GLAXOSMITHKLINE-B0410424A

PATIENT
  Age: 40 Year
  Sex: Female
  Weight: 68 kg

DRUGS (2)
  1. LAMICTAL [Suspect]
     Indication: BIPOLAR DISORDER
     Dosage: 50MG TWICE PER DAY
     Route: 048
     Dates: start: 20060125, end: 20060208
  2. SEROXAT [Concomitant]
     Indication: BIPOLAR DISORDER
     Dosage: 1.5TAB PER DAY
     Route: 048

REACTIONS (9)
  - BLINDNESS [None]
  - CONJUNCTIVITIS [None]
  - CORNEAL DISORDER [None]
  - HEADACHE [None]
  - HYPERSENSITIVITY [None]
  - LYMPHADENITIS [None]
  - PYREXIA [None]
  - RASH [None]
  - TOXIC EPIDERMAL NECROLYSIS [None]
